FAERS Safety Report 20922133 (Version 1)
Quarter: 2022Q2

REPORT INFORMATION
  Report Type: Spontaneous
  Country: US (occurrence: US)
  Receive Date: 20220607
  Receipt Date: 20220607
  Transmission Date: 20220721
  Serious: No
  Sender: FDA-Public Use
  Company Number: US-ALK-ABELLO A/S-2022AA001614

PATIENT

DRUGS (1)
  1. GRASTEK [Suspect]
     Active Substance: PHLEUM PRATENSE POLLEN
     Indication: Product used for unknown indication
     Dosage: 2800 BIOEQUIVALENT ALLERGY UNITS
     Route: 060
     Dates: start: 20220315

REACTIONS (6)
  - Pharyngeal swelling [Recovered/Resolved]
  - Sensation of foreign body [Recovered/Resolved]
  - Pharyngeal swelling [Recovered/Resolved]
  - Sensation of foreign body [Recovered/Resolved]
  - Pharyngeal swelling [Recovered/Resolved]
  - Sensation of foreign body [Recovered/Resolved]

NARRATIVE: CASE EVENT DATE: 20220427
